FAERS Safety Report 6609590-1 (Version None)
Quarter: 2010Q1

REPORT INFORMATION
  Report Type: 
  Country: None (occurrence: None)
  Receive Date: 20100302
  Receipt Date: 20100218
  Transmission Date: 20100710
  Serious: Yes (Other)
  Sender: FDA-Public Use
  Company Number: IT-BRISTOL-MYERS SQUIBB COMPANY-14859235

PATIENT
  Age: 6 Decade
  Sex: Female

DRUGS (7)
  1. ERBITUX [Suspect]
     Indication: COLON CANCER
     Dosage: STOPPED(9CYCLES)
     Dates: start: 20050401
  2. IRINOTECAN HCL [Suspect]
     Indication: COLON CANCER
     Dosage: 40 COURSES AND 9 CYCLES
     Dates: start: 20050401
  3. PANITUMUMAB [Suspect]
     Indication: COLON CANCER
     Dosage: 12CYCLES
  4. OXALIPLATIN [Concomitant]
     Indication: COLON CANCER
     Dosage: 1DF: 12CYCLES
  5. FLUOROURACIL [Concomitant]
     Indication: COLON CANCER
     Dosage: 1DF: 12CYCLES
  6. FOLINIC ACID [Concomitant]
     Indication: COLON CANCER
     Dosage: 1DF: 12CYCLES
  7. BEVACIZUMAB [Concomitant]
     Indication: COLON CANCER
     Dosage: 1 DOSAGEFORM= 12 CYCLES

REACTIONS (1)
  - STEVENS-JOHNSON SYNDROME [None]
